APPROVED DRUG PRODUCT: METHYLDOPA
Active Ingredient: METHYLDOPA
Strength: 125MG
Dosage Form/Route: TABLET;ORAL
Application: A070073 | Product #001
Applicant: SUN PHARMACEUTICAL INDUSTRIES INC
Approved: Oct 9, 1986 | RLD: No | RS: No | Type: DISCN